FAERS Safety Report 9316648 (Version 1)
Quarter: 2013Q1

REPORT INFORMATION
  Report Type: Spontaneous
  Country: DK (occurrence: None)
  Receive Date: 20130116
  Receipt Date: 20130116
  Transmission Date: 20140127
  Serious: Yes (Other)
  Sender: FDA-Public Use
  Company Number: 2012MA013586

PATIENT
  Age: 33 Year
  Sex: Female

DRUGS (3)
  1. CITALOPRAM HYDROBROMIDE [Suspect]
     Indication: ANXIETY
     Dates: start: 201211, end: 201211
  2. OMEPRAZOLE [Concomitant]
  3. PROPRANOLOL [Concomitant]

REACTIONS (5)
  - Depression [None]
  - Palpitations [None]
  - Hyperhidrosis [None]
  - Agitation [None]
  - Product substitution issue [None]
